FAERS Safety Report 14137933 (Version 1)
Quarter: 2017Q4

REPORT INFORMATION
  Report Type: Spontaneous
  Country: US (occurrence: US)
  Receive Date: 20171027
  Receipt Date: 20171027
  Transmission Date: 20180321
  Serious: Yes (Other)
  Sender: FDA-Public Use
  Company Number: US-UCBSA-2017042911

PATIENT
  Age: 37 Year
  Sex: Female
  Weight: 90 kg

DRUGS (13)
  1. ESLICARBAZEPINE ACETATE [Suspect]
     Active Substance: ESLICARBAZEPINE ACETATE
     Indication: PRODUCT USED FOR UNKNOWN INDICATION
     Dosage: UNK
  2. ONFI [Suspect]
     Active Substance: CLOBAZAM
     Indication: PRODUCT USED FOR UNKNOWN INDICATION
     Dosage: 10 MG, 2X/DAY (BID)
     Route: 048
     Dates: start: 2014
  3. OXCARBAZEPINE. [Concomitant]
     Active Substance: OXCARBAZEPINE
     Indication: PRODUCT USED FOR UNKNOWN INDICATION
     Dosage: 600 MG, ONCE DAILY (QD)
  4. BRIVIACT [Suspect]
     Active Substance: BRIVARACETAM
     Dosage: TAPERED OFF DOSE
     Dates: start: 201703
  5. ONFI [Suspect]
     Active Substance: CLOBAZAM
     Dosage: TAPERED OFF DOSE
  6. ZONISAMIDE. [Suspect]
     Active Substance: ZONISAMIDE
     Dosage: TAPERED OFF DOSE
  7. ZONISAMIDE. [Suspect]
     Active Substance: ZONISAMIDE
     Indication: PRODUCT USED FOR UNKNOWN INDICATION
     Dosage: UNK
  8. ONFI [Suspect]
     Active Substance: CLOBAZAM
     Dosage: 10 MG, 2X/DAY (BID)
     Route: 048
  9. BRIVIACT [Suspect]
     Active Substance: BRIVARACETAM
     Indication: PRODUCT USED FOR UNKNOWN INDICATION
     Dosage: UNK
  10. PERAMPANEL [Suspect]
     Active Substance: PERAMPANEL
     Indication: PRODUCT USED FOR UNKNOWN INDICATION
     Dosage: UNK
     Dates: end: 20140906
  11. CLONAZEPAM. [Concomitant]
     Active Substance: CLONAZEPAM
     Indication: PRODUCT USED FOR UNKNOWN INDICATION
  12. LEVETIRACETAM. [Concomitant]
     Active Substance: LEVETIRACETAM
     Indication: PRODUCT USED FOR UNKNOWN INDICATION
     Dosage: 1500 MG, 2X/DAY (BID)
  13. ESLICARBAZEPINE ACETATE [Suspect]
     Active Substance: ESLICARBAZEPINE ACETATE
     Dosage: TAPERED OFF DOSE
     Dates: start: 201708

REACTIONS (8)
  - Depression [Unknown]
  - Hallucination [Unknown]
  - Hemiparesis [Unknown]
  - Suicidal ideation [Recovered/Resolved]
  - Seizure [Recovering/Resolving]
  - Mood altered [Not Recovered/Not Resolved]
  - Brain operation [Unknown]
  - Speech disorder [Unknown]

NARRATIVE: CASE EVENT DATE: 2014
